FAERS Safety Report 21233960 (Version 3)
Quarter: 2022Q3

REPORT INFORMATION
  Report Type: Spontaneous
  Country: US (occurrence: US)
  Receive Date: 20220819
  Receipt Date: 20220929
  Transmission Date: 20221027
  Serious: Yes (Hospitalization, Other)
  Sender: FDA-Public Use
  Company Number: US-JNJFOC-20220821872

PATIENT
  Age: 58 Year
  Sex: Male
  Weight: 108.05 kg

DRUGS (1)
  1. ERLEADA [Suspect]
     Active Substance: APALUTAMIDE
     Indication: Prostate cancer metastatic
     Dosage: SERIAL:165816199400?GTIN: 00359676600121
     Route: 048
     Dates: start: 2019

REACTIONS (7)
  - Skin cancer [Unknown]
  - Spinal cord compression [Unknown]
  - Type 2 diabetes mellitus [Unknown]
  - COVID-19 [Unknown]
  - Hot flush [Unknown]
  - Anaemia [Unknown]
  - Product packaging quantity issue [Unknown]

NARRATIVE: CASE EVENT DATE: 20211001
